FAERS Safety Report 13885446 (Version 1)
Quarter: 2017Q3

REPORT INFORMATION
  Report Type: Spontaneous
  Country: US (occurrence: US)
  Receive Date: 20170821
  Receipt Date: 20170821
  Transmission Date: 20171127
  Serious: Yes (Other)
  Sender: FDA-Public Use
  Company Number: US-PFIZER INC-2017356340

PATIENT
  Age: 83 Year
  Sex: Male
  Weight: 94.97 kg

DRUGS (5)
  1. LYRICA [Suspect]
     Active Substance: PREGABALIN
     Indication: PAIN
     Dosage: 100 MG, 2X/DAY (MORNING AND AT NIGHT)
     Dates: start: 2010
  2. LYRICA [Suspect]
     Active Substance: PREGABALIN
     Indication: MUSCLE SPASMS
     Dosage: 100 MG, 1X/DAY (AT NIGHT)
     Dates: start: 2010
  3. CORTISONE [Concomitant]
     Active Substance: CORTISONE\HYDROCORTISONE
     Indication: ARTHRALGIA
     Dosage: UNK
  4. TYLENOL PM [Concomitant]
     Active Substance: ACETAMINOPHEN\DIPHENHYDRAMINE
     Dosage: UNK
  5. HORIZANT [Concomitant]
     Active Substance: GABAPENTIN ENACARBIL
     Indication: MUSCLE RELAXANT THERAPY
     Dosage: UNK

REACTIONS (14)
  - Disturbance in attention [Unknown]
  - Vision blurred [Recovering/Resolving]
  - Intentional product use issue [Not Recovered/Not Resolved]
  - Peripheral swelling [Unknown]
  - Dysphagia [Not Recovered/Not Resolved]
  - Pre-existing condition improved [Unknown]
  - Somnolence [Not Recovered/Not Resolved]
  - Weight decreased [Unknown]
  - Restless legs syndrome [Unknown]
  - Weight increased [Not Recovered/Not Resolved]
  - Cataract [Unknown]
  - Dry mouth [Recovering/Resolving]
  - Regurgitation [Not Recovered/Not Resolved]
  - Therapeutic response unexpected [Unknown]

NARRATIVE: CASE EVENT DATE: 2010
